FAERS Safety Report 23784299 (Version 1)
Quarter: 2024Q2

REPORT INFORMATION
  Report Type: Spontaneous
  Country: US (occurrence: US)
  Receive Date: 20240425
  Receipt Date: 20240425
  Transmission Date: 20240715
  Serious: No
  Sender: FDA-Public Use
  Company Number: US-Kiniksa Pharmaceuticals Ltd.-2023KPU001026

PATIENT
  Age: 35 Year
  Sex: Female

DRUGS (7)
  1. ARCALYST [Suspect]
     Active Substance: RILONACEPT
     Indication: Pericarditis
     Route: 058
     Dates: start: 20231026
  2. ARCALYST [Suspect]
     Active Substance: RILONACEPT
     Indication: Pericarditis
  3. LOSARTAN [Concomitant]
     Active Substance: LOSARTAN
     Indication: Product used for unknown indication
  4. AMLODIPINE [Concomitant]
     Active Substance: AMLODIPINE BESYLATE
     Indication: Product used for unknown indication
  5. ALBUTEROL [Concomitant]
     Active Substance: ALBUTEROL
     Indication: Product used for unknown indication
  6. TOUJEO [Concomitant]
     Active Substance: INSULIN GLARGINE
     Indication: Diabetes mellitus
  7. INSULIN NOS [Concomitant]
     Active Substance: INSULIN NOS
     Indication: Diabetes mellitus

REACTIONS (2)
  - Incorrect dose administered [Unknown]
  - Product complaint [Unknown]

NARRATIVE: CASE EVENT DATE: 20231026
